FAERS Safety Report 6887758-7 (Version None)
Quarter: 2010Q3

REPORT INFORMATION
  Report Type: 
  Country: None (occurrence: None)
  Receive Date: 20100730
  Receipt Date: 20100722
  Transmission Date: 20110219
  Serious: Yes (Hospitalization)
  Sender: FDA-Public Use
  Company Number: FR-ROCHE-717243

PATIENT
  Sex: Female

DRUGS (2)
  1. AVASTIN [Suspect]
     Route: 042
     Dates: start: 20100112, end: 20100325
  2. PACLITAXEL [Suspect]
     Route: 042
     Dates: start: 20100112, end: 20100325

REACTIONS (3)
  - CELL DEATH [None]
  - CHOLESTASIS [None]
  - MALIGNANT NEOPLASM PROGRESSION [None]
